FAERS Safety Report 6306266-5 (Version None)
Quarter: 2009Q3

REPORT INFORMATION
  Report Type: 
  Country: None (occurrence: None)
  Receive Date: 20090812
  Receipt Date: 20090803
  Transmission Date: 20100115
  Serious: Yes (Hospitalization)
  Sender: FDA-Public Use
  Company Number: PHHO2009DE01314

PATIENT
  Sex: Female
  Weight: 91 kg

DRUGS (1)
  1. RAD 666 RAD+TAB+CMAS [Suspect]
     Indication: RENAL CANCER METASTATIC
     Dosage: DOIBLE BLIND
     Route: 048
     Dates: start: 20070607

REACTIONS (3)
  - ANAEMIA [None]
  - GENERAL PHYSICAL HEALTH DETERIORATION [None]
  - PYREXIA [None]
